FAERS Safety Report 5761305-5 (Version None)
Quarter: 2008Q2

REPORT INFORMATION
  Report Type: 
  Country: None (occurrence: None)
  Receive Date: 20080606
  Receipt Date: 20080528
  Transmission Date: 20081010
  Serious: Yes (Other)
  Sender: FDA-Public Use
  Company Number: JP-MERCK-0803USA00298

PATIENT
  Age: 34 Year
  Sex: Male

DRUGS (2)
  1. PROPECIA [Suspect]
     Indication: ANDROGENETIC ALOPECIA
     Route: 048
     Dates: start: 20071102, end: 20080219
  2. PROPECIA [Suspect]
     Route: 048
     Dates: start: 20071002, end: 20071030

REACTIONS (1)
  - PARAESTHESIA [None]
